FAERS Safety Report 12598042 (Version 1)
Quarter: 2016Q3

REPORT INFORMATION
  Report Type: Report from Study
  Country: CA (occurrence: CA)
  Receive Date: 20160726
  Receipt Date: 20160726
  Transmission Date: 20161109
  Serious: Yes (Other)
  Sender: FDA-Public Use
  Company Number: CA-HLSUS-2016-CA-000295

PATIENT
  Age: 55 Year
  Sex: Male

DRUGS (5)
  1. GLYCOPYRROLATE. [Concomitant]
     Active Substance: GLYCOPYRROLATE
  2. MORPHINE [Concomitant]
     Active Substance: MORPHINE
  3. TYLENOL [Concomitant]
     Active Substance: ACETAMINOPHEN
  4. CLOZARIL [Suspect]
     Active Substance: CLOZAPINE
     Indication: PRODUCT USED FOR UNKNOWN INDICATION
     Route: 048
     Dates: start: 19941213
  5. ATIVAN [Concomitant]
     Active Substance: LORAZEPAM

REACTIONS (1)
  - Cerebral infarction [Unknown]

NARRATIVE: CASE EVENT DATE: 1997
